FAERS Safety Report 4935751-3 (Version None)
Quarter: 2006Q1

REPORT INFORMATION
  Report Type: 
  Country: None (occurrence: None)
  Receive Date: 20060307
  Receipt Date: 20051130
  Transmission Date: 20060701
  Serious: No
  Sender: FDA-Public Use
  Company Number: US-GLAXOSMITHKLINE-A0584092A

PATIENT
  Sex: Female

DRUGS (3)
  1. REQUIP [Suspect]
     Indication: RESTLESS LEGS SYNDROME
     Dosage: .5MG PER DAY
     Route: 048
     Dates: start: 20050827
  2. COUMADIN [Concomitant]
  3. COREG [Concomitant]

REACTIONS (2)
  - SOMNOLENCE [None]
  - WRONG TECHNIQUE IN DRUG USAGE PROCESS [None]
